FAERS Safety Report 8530574-0 (Version None)
Quarter: 2012Q3

REPORT INFORMATION
  Report Type: 
  Country: None (occurrence: None)
  Receive Date: 20120723
  Receipt Date: 20120716
  Transmission Date: 20120928
  Serious: Yes (Other)
  Sender: FDA-Public Use
  Company Number: CA-BAYER-2012-070341

PATIENT
  Age: 40 Year
  Sex: Female
  Weight: 50 kg

DRUGS (1)
  1. AVELOX [Suspect]
     Dosage: 400 MG, QD
     Route: 048

REACTIONS (11)
  - HYPERHIDROSIS [None]
  - DIARRHOEA [None]
  - HEADACHE [None]
  - TREMOR [None]
  - FATIGUE [None]
  - PARAESTHESIA [None]
  - DYSGEUSIA [None]
  - HEART RATE IRREGULAR [None]
  - HEART RATE INCREASED [None]
  - ARTHRALGIA [None]
  - INSOMNIA [None]
